FAERS Safety Report 9553889 (Version 2)
Quarter: 2014Q1

REPORT INFORMATION
  Report Type: Spontaneous
  Country: HU (occurrence: HU)
  Receive Date: 20130925
  Receipt Date: 20140227
  Transmission Date: 20141002
  Serious: Yes (Other)
  Sender: FDA-Public Use
  Company Number: HU-JNJFOC-20130914598

PATIENT
  Age: 37 Year
  Sex: Female
  Weight: 60 kg

DRUGS (5)
  1. REMICADE [Suspect]
     Indication: CROHN^S DISEASE
     Dosage: THIRD INFUSION, STRENGTH 100 MG
     Route: 042
     Dates: start: 20130903, end: 20130903
  2. REMICADE [Suspect]
     Indication: CROHN^S DISEASE
     Dosage: SECOND INFUSION
     Route: 042
     Dates: start: 20130806, end: 20130806
  3. REMICADE [Suspect]
     Indication: CROHN^S DISEASE
     Dosage: FIRST INFUSION
     Route: 042
     Dates: start: 20130723, end: 20130723
  4. EMOZUL [Concomitant]
     Indication: PROPHYLAXIS AGAINST GASTROINTESTINAL ULCER
     Dosage: 40 MG GASTRO-RESISTANT HARD CAPSULES
     Route: 048
     Dates: start: 2012
  5. PENTASA [Concomitant]
     Indication: CROHN^S DISEASE
     Dosage: 500 MG EXTENDED RELEASE TABLET (DAILY DOSE OF 2 G)
     Route: 048
     Dates: start: 2012

REACTIONS (4)
  - Urticaria [Recovered/Resolved]
  - Infusion related reaction [Recovered/Resolved]
  - Pruritus [Recovered/Resolved]
  - Suffocation feeling [Recovered/Resolved]
